FAERS Safety Report 8012367-6 (Version None)
Quarter: 2011Q4

REPORT INFORMATION
  Report Type: 
  Country: None (occurrence: None)
  Receive Date: 20111228
  Receipt Date: 20111216
  Transmission Date: 20120403
  Serious: Yes (Other)
  Sender: FDA-Public Use
  Company Number: FI-AMGEN-FINSP2011068398

PATIENT
  Age: 31 Year
  Sex: Female

DRUGS (4)
  1. ENBREL [Suspect]
     Indication: JUVENILE ARTHRITIS
     Dosage: 25 MG, 2X/WEEK
     Route: 065
     Dates: start: 19990701, end: 20000801
  2. METHOTREXATE [Concomitant]
     Dosage: 20 MG, QWK
     Route: 065
     Dates: start: 19990701
  3. ENBREL [Suspect]
     Dosage: 25 MG, WEEKLY
     Route: 065
     Dates: start: 20000801, end: 20000801
  4. METHOTREXATE [Concomitant]
     Dosage: 25MG, WEEKLY
     Route: 065
     Dates: start: 19950101, end: 19990701

REACTIONS (1)
  - IRIDOCYCLITIS [None]
